FAERS Safety Report 5557529-2 (Version None)
Quarter: 2007Q4

REPORT INFORMATION
  Report Type: 
  Country: None (occurrence: None)
  Receive Date: 20071214
  Receipt Date: 20071207
  Transmission Date: 20080405
  Serious: Yes (Other)
  Sender: FDA-Public Use
  Company Number: A0685013A

PATIENT
  Age: 65 Year
  Sex: Female
  Weight: 50 kg

DRUGS (7)
  1. LAMICTAL [Suspect]
     Dosage: 150MG UNKNOWN
     Route: 048
     Dates: start: 20070718, end: 20070828
  2. TEGRETOL [Suspect]
     Dosage: 200U PER DAY
     Route: 065
     Dates: start: 20070815, end: 20070927
  3. CIPROFLOXACIN HCL [Suspect]
     Indication: DRUG USE FOR UNKNOWN INDICATION
     Dosage: 500MG PER DAY
     Route: 065
     Dates: start: 20070810, end: 20070815
  4. NORFLEX [Concomitant]
     Dosage: 50U PER DAY
     Route: 048
     Dates: start: 20070813
  5. XANAX [Concomitant]
     Indication: SLEEP DISORDER
     Dosage: .25U TWICE PER DAY
     Route: 048
     Dates: start: 20070801
  6. NAVANE [Concomitant]
     Dosage: 8MG PER DAY
     Route: 048
     Dates: start: 20070822, end: 20070922
  7. PREMARIN [Concomitant]
     Dosage: .3MG UNKNOWN
     Route: 048
     Dates: start: 20070222

REACTIONS (5)
  - HEPATIC ENZYME INCREASED [None]
  - PYREXIA [None]
  - RASH [None]
  - SKIN LESION [None]
  - SWELLING FACE [None]
